FAERS Safety Report 18479873 (Version 3)
Quarter: 2020Q4

REPORT INFORMATION
  Report Type: Spontaneous
  Country: US (occurrence: US)
  Receive Date: 20201109
  Receipt Date: 20201116
  Transmission Date: 20210114
  Serious: No
  Sender: FDA-Public Use
  Company Number: US-PFIZER INC-2020430533

PATIENT
  Sex: Female
  Weight: 58.97 kg

DRUGS (3)
  1. PREMARIN [Suspect]
     Active Substance: ESTROGENS, CONJUGATED
     Indication: SEPSIS
     Dosage: 5 MG, 2X/WEEK
     Dates: start: 2016
  2. PRIMROSE [Concomitant]
     Dosage: UNK
     Dates: start: 2016
  3. FOLIC ACID GENERIC [Concomitant]
     Dosage: UNK
     Dates: start: 2013

REACTIONS (3)
  - Off label use [Unknown]
  - Product use issue [Unknown]
  - Drug ineffective for unapproved indication [Unknown]
